FAERS Safety Report 23257178 (Version 2)
Quarter: 2023Q4

REPORT INFORMATION
  Report Type: Spontaneous
  Country: CA (occurrence: None)
  Receive Date: 20231204
  Receipt Date: 20231212
  Transmission Date: 20240110
  Serious: Yes (Life-Threatening)
  Sender: FDA-Public Use
  Company Number: CA-ROCHE-3465744

PATIENT
  Age: 46 Year
  Sex: Male

DRUGS (5)
  1. AVASTIN [Suspect]
     Active Substance: BEVACIZUMAB
     Indication: Colorectal cancer
     Route: 065
  2. OXALIPLATIN [Concomitant]
     Active Substance: OXALIPLATIN
  3. FLUOROURACIL\LEUCOVORIN CALCIUM\OXALIPLATIN [Concomitant]
     Active Substance: FLUOROURACIL\LEUCOVORIN CALCIUM\OXALIPLATIN
  4. FLUOROURACIL [Concomitant]
     Active Substance: FLUOROURACIL
  5. LONSURF [Concomitant]
     Active Substance: TIPIRACIL HYDROCHLORIDE\TRIFLURIDINE

REACTIONS (4)
  - Hepatic cancer recurrent [Not Recovered/Not Resolved]
  - Lung carcinoma cell type unspecified recurrent [Not Recovered/Not Resolved]
  - Lymphoma [Not Recovered/Not Resolved]
  - Metastases to central nervous system [Not Recovered/Not Resolved]
